FAERS Safety Report 8609030-7 (Version None)
Quarter: 2012Q3

REPORT INFORMATION
  Report Type: 
  Country: None (occurrence: None)
  Receive Date: 20120821
  Receipt Date: 20120815
  Transmission Date: 20120928
  Serious: Yes (Life-Threatening, Hospitalization)
  Sender: FDA-Public Use
  Company Number: CZ-GLAXOSMITHKLINE-B0823939A

PATIENT
  Sex: Male

DRUGS (5)
  1. SORBIFER [Concomitant]
     Dosage: 1TAB PER DAY
     Route: 065
  2. ATENOBENE [Concomitant]
     Dosage: 50MG PER DAY
     Route: 065
  3. ESSENTIALE FORTE [Concomitant]
     Dosage: 2TAB PER DAY
     Route: 065
  4. VOTRIENT [Suspect]
     Indication: RENAL CANCER
     Route: 065
  5. DEGAN [Concomitant]
     Dosage: 3TAB PER DAY
     Route: 065

REACTIONS (6)
  - PALMAR-PLANTAR ERYTHRODYSAESTHESIA SYNDROME [None]
  - DIARRHOEA [None]
  - PAIN IN EXTREMITY [None]
  - PARAESTHESIA [None]
  - MYOCARDIAL INFARCTION [None]
  - ERYTHEMA [None]
